FAERS Safety Report 6291665-0 (Version None)
Quarter: 2009Q3

REPORT INFORMATION
  Report Type: 
  Country: None (occurrence: None)
  Receive Date: 20090730
  Receipt Date: 20090723
  Transmission Date: 20100115
  Serious: Yes (Hospitalization)
  Sender: FDA-Public Use
  Company Number: JP-ASTRAZENECA-2009AP01834

PATIENT
  Age: 79 Year
  Sex: Female

DRUGS (3)
  1. ARIMIDEX [Suspect]
     Indication: BREAST CANCER
     Route: 048
     Dates: end: 20090306
  2. HYDROCORTISONE 10MG TAB [Suspect]
     Route: 042
  3. NEOPHYLLIN [Suspect]
     Route: 065

REACTIONS (2)
  - FLUSHING [None]
  - GAIT DISTURBANCE [None]
